FAERS Safety Report 7305336 (Version 4)
Quarter: 2012Q4

REPORT INFORMATION
  Report Type: 
  Country: JP (occurrence: JP)
  Receive Date: 20100304
  Receipt Date: 20121218
  Transmission Date: 20130627
  Serious: Yes (Life-Threatening, Hospitalization, Other)
  Sender: FDA-Public Use
  Company Number: JP-GENZYME-THYM-1001010

PATIENT
  Age: 23 Year
  Sex: Male
  Weight: 73 kg

DRUGS (21)
  1. THYMOGLOBULINE [Suspect]
     Indication: BONE MARROW CONDITIONING REGIMEN
     Dosage: 180 mg, qd
     Route: 042
     Dates: start: 20090216, end: 20090219
  2. FLUDARABINE PHOSPHATE [Concomitant]
     Indication: BONE MARROW CONDITIONING REGIMEN
     Dosage: 30 mg/m2, qd
     Route: 042
     Dates: start: 20090211, end: 20090215
  3. FLUDARABINE PHOSPHATE [Concomitant]
     Indication: APLASTIC ANAEMIA
  4. CYCLOPHOSPHAMIDE [Concomitant]
     Indication: BONE MARROW CONDITIONING REGIMEN
     Dosage: 60 mg/kg, qd
     Route: 042
     Dates: start: 20090214, end: 20090215
  5. CYCLOPHOSPHAMIDE [Concomitant]
     Indication: APLASTIC ANAEMIA
  6. METHYLPREDNISOLONE SODIUM SUCCINATE [Concomitant]
     Indication: BONE MARROW CONDITIONING REGIMEN
     Dosage: 125 mg, UNK
     Route: 065
     Dates: start: 20090216, end: 20090219
  7. METHYLPREDNISOLONE SODIUM SUCCINATE [Concomitant]
     Indication: PREMEDICATION
  8. MEROPENEM TRIHYDRATE [Concomitant]
     Indication: PROCTITIS
     Dosage: 1 g, bid
     Route: 065
     Dates: start: 20090209, end: 20090324
  9. MEROPENEM TRIHYDRATE [Concomitant]
     Indication: INFECTION PROPHYLAXIS
     Dosage: UNK
     Route: 042
     Dates: start: 20090209, end: 20090224
  10. VANCOMYCIN HYDROCHLORIDE [Concomitant]
     Indication: PROCTITIS
     Dosage: 1 g, bid
     Route: 065
     Dates: start: 20090210, end: 20090318
  11. VANCOMYCIN HYDROCHLORIDE [Concomitant]
     Indication: INFECTION PROPHYLAXIS
     Dosage: UNK
     Route: 042
     Dates: start: 20090210, end: 20090318
  12. VALACICLOVIR HYDROCHLORIDE [Concomitant]
     Indication: ANTIVIRAL PROPHYLAXIS
     Dosage: UNK
     Route: 048
     Dates: start: 20090217, end: 20090225
  13. LANSOPRAZOLE [Concomitant]
     Indication: PROPHYLAXIS
     Dosage: UNK
     Route: 048
     Dates: start: 20090219, end: 20090225
  14. VORICONAZOLE [Concomitant]
     Indication: INFECTION PROPHYLAXIS
     Dosage: UNK
     Route: 048
     Dates: start: 20090219, end: 20090225
  15. ZOLPIDEM TARTRATE [Concomitant]
     Indication: INSOMNIA
     Dosage: UNK
     Dates: start: 20090218, end: 20090219
  16. MAGNESIUM OXIDE [Concomitant]
     Indication: CONSTIPATION
     Dosage: UNK
     Route: 048
     Dates: start: 20090218, end: 20090219
  17. CICLOSPORIN [Concomitant]
     Indication: PROPHYLAXIS AGAINST GRAFT VERSUS HOST DISEASE
     Dosage: UNK
     Route: 042
     Dates: start: 20090219, end: 20090219
  18. CHLORPHENIRAMINE MALEATE [Concomitant]
     Indication: INFECTION PROPHYLAXIS
     Dosage: UNK
     Route: 042
     Dates: start: 20090220, end: 20090220
  19. HYDROCORTISONE SODIUM SUCCINATE [Concomitant]
     Indication: INFECTION PROPHYLAXIS
     Dosage: UNK
     Dates: start: 20090220, end: 20090220
  20. METHOTREXATE [Concomitant]
     Indication: PROPHYLAXIS AGAINST GRAFT VERSUS HOST DISEASE
  21. UNRELATED DONOR BONE MARROW TRANSPLANTATION THERAPY [Concomitant]
     Indication: APLASTIC ANAEMIA
     Dosage: UNK
     Dates: start: 20090827, end: 20090827

REACTIONS (7)
  - Liver disorder [Recovered/Resolved]
  - Engraft failure [Unknown]
  - Pancytopenia [Unknown]
  - Chronic graft versus host disease [Unknown]
  - Pyrexia [Recovered/Resolved]
  - Post transplant lymphoproliferative disorder [Recovered/Resolved]
  - Platelet count decreased [Not Recovered/Not Resolved]
